FAERS Safety Report 13711353 (Version 3)
Quarter: 2017Q4

REPORT INFORMATION
  Report Type: Report from Study
  Country: FR (occurrence: FR)
  Receive Date: 20170703
  Receipt Date: 20171212
  Transmission Date: 20180320
  Serious: Yes (Other)
  Sender: FDA-Public Use
  Company Number: FR-ROCHE-1954284

PATIENT
  Age: 51 Year
  Sex: Female

DRUGS (8)
  1. BEVACIZUMAB. [Suspect]
     Active Substance: BEVACIZUMAB
     Route: 042
     Dates: start: 20170511
  2. PEGYLATED LIPOSOMAL DOXORUBICIN [Suspect]
     Active Substance: DOXORUBICIN
     Indication: RECURRENT CANCER
     Dosage: ON DAY 1 OF EVERY CYCLE?LAST DOSE PRIOR TO EVENT ONSET ON 13/APR/2017?CAELYX
     Route: 042
     Dates: start: 20170209, end: 20170427
  3. CARBOPLATIN. [Suspect]
     Active Substance: CARBOPLATIN
     Indication: RECURRENT CANCER
     Dosage: DOSE: AUC =5, ON DAY 1 OF EVERY CYCLE?LAST DOSE PRIOR TO EVENT ONSET ON 13/APR/2017
     Route: 042
     Dates: start: 20170209, end: 20170427
  4. CARBOPLATIN. [Suspect]
     Active Substance: CARBOPLATIN
     Route: 042
     Dates: start: 20170511
  5. ATEZOLIZUMAB. [Suspect]
     Active Substance: ATEZOLIZUMAB
     Indication: RECURRENT CANCER
     Dosage: LAST DOSE PRIOR TO EVENT ONSET ON 13/APR/2017?ON DAY 1 AND 15 OF EVERY CYCLE
     Route: 042
     Dates: start: 20170209, end: 20170427
  6. BEVACIZUMAB. [Suspect]
     Active Substance: BEVACIZUMAB
     Indication: RECURRENT CANCER
     Dosage: LAST DOSE PRIOR TO EVENT ONSET ON 13/APR/2017
     Route: 042
     Dates: start: 20170209, end: 20170427
  7. PEGYLATED LIPOSOMAL DOXORUBICIN [Suspect]
     Active Substance: DOXORUBICIN
     Dosage: REDUCED DOSE
     Route: 042
     Dates: start: 20170511
  8. ATEZOLIZUMAB. [Suspect]
     Active Substance: ATEZOLIZUMAB
     Route: 042
     Dates: start: 20170511

REACTIONS (1)
  - Palmar-plantar erythrodysaesthesia syndrome [Recovered/Resolved]

NARRATIVE: CASE EVENT DATE: 20170427
